FAERS Safety Report 24235015 (Version 1)
Quarter: 2024Q3

REPORT INFORMATION
  Report Type: Spontaneous
  Country: US (occurrence: None)
  Receive Date: 20240821
  Receipt Date: 20240821
  Transmission Date: 20241017
  Serious: Yes (Hospitalization)
  Sender: Public
  Company Number: None

PATIENT
  Age: 46 Year
  Sex: Male

DRUGS (3)
  1. EVEROLIMUS [Suspect]
     Active Substance: EVEROLIMUS
     Indication: Renal transplant
     Dosage: FREQUENCY : TWICE A DAY;?
     Route: 048
     Dates: start: 202402
  2. TACROLIMUS (BIOCON) [Concomitant]
  3. MYCOPHENOLATE MOFETIL [Concomitant]

REACTIONS (3)
  - Osteomyelitis [None]
  - Therapy interrupted [None]
  - Impaired healing [None]

NARRATIVE: CASE EVENT DATE: 20240715
